FAERS Safety Report 6010206-6 (Version None)
Quarter: 2008Q4

REPORT INFORMATION
  Report Type: 
  Country: None (occurrence: None)
  Receive Date: 20081218
  Receipt Date: 20071116
  Transmission Date: 20090506
  Serious: No
  Sender: FDA-Public Use
  Company Number: A0694959A

PATIENT

DRUGS (1)
  1. FLONASE [Suspect]
     Indication: RHINITIS
     Route: 045

REACTIONS (2)
  - AGEUSIA [None]
  - ANOSMIA [None]
